FAERS Safety Report 4846851-0 (Version None)
Quarter: 2005Q4

REPORT INFORMATION
  Report Type: 
  Country: None (occurrence: None)
  Receive Date: 20051207
  Receipt Date: 20050517
  Transmission Date: 20060501
  Serious: Yes (Death, Hospitalization)
  Sender: FDA-Public Use
  Company Number: US-BRISTOL-MYERS SQUIBB COMPANY-12972501

PATIENT
  Sex: Male

DRUGS (3)
  1. VIDEX EC [Suspect]
  2. VIREAD [Concomitant]
  3. KALETRA [Concomitant]

REACTIONS (1)
  - LACTIC ACIDOSIS [None]
